FAERS Safety Report 24740305 (Version 1)
Quarter: 2024Q4

REPORT INFORMATION
  Report Type: Spontaneous
  Country: CH (occurrence: CH)
  Receive Date: 20241216
  Receipt Date: 20241216
  Transmission Date: 20250114
  Serious: Yes (Hospitalization, Other)
  Sender: ASTELLAS
  Company Number: None

PATIENT
  Age: 69 Year
  Sex: Male

DRUGS (5)
  1. PADCEV [Suspect]
     Active Substance: ENFORTUMAB VEDOTIN\ENFORTUMAB VEDOTIN-EJFV
     Indication: Bladder transitional cell carcinoma
     Dosage: CYCLE 1?1.25MG/KG (D1,8)
     Route: 042
     Dates: start: 20240906
  2. PADCEV [Suspect]
     Active Substance: ENFORTUMAB VEDOTIN\ENFORTUMAB VEDOTIN-EJFV
     Dosage: CYCLE 1
     Route: 042
     Dates: start: 20240923
  3. PADCEV [Suspect]
     Active Substance: ENFORTUMAB VEDOTIN\ENFORTUMAB VEDOTIN-EJFV
     Dosage: CYCLE 2
     Route: 042
     Dates: start: 20241008
  4. KEYTRUDA [Suspect]
     Active Substance: PEMBROLIZUMAB
     Indication: Bladder transitional cell carcinoma
     Dosage: Q3W, CYCLES 6
     Route: 042
     Dates: start: 20240906
  5. KEYTRUDA [Suspect]
     Active Substance: PEMBROLIZUMAB
     Dosage: Q3W, CYCLES 6
     Route: 042
     Dates: start: 20241007

REACTIONS (3)
  - Liver disorder [Recovering/Resolving]
  - General physical health deterioration [Unknown]
  - Cholestasis [Unknown]

NARRATIVE: CASE EVENT DATE: 20241007
